FAERS Safety Report 15575146 (Version 1)
Quarter: 2018Q4

REPORT INFORMATION
  Report Type: Spontaneous
  Country: US (occurrence: US)
  Receive Date: 20181101
  Receipt Date: 20181101
  Transmission Date: 20190205
  Serious: Yes (Other)
  Sender: FDA-Public Use
  Company Number: US-AMGEN-USASP2018151665

PATIENT
  Age: 74 Year
  Sex: Male

DRUGS (2)
  1. PROLIA [Suspect]
     Active Substance: DENOSUMAB
     Indication: OSTEOPOROSIS
     Dosage: UNK, Q6MO
     Route: 065
     Dates: start: 2016
  2. SINEMET [Concomitant]
     Active Substance: CARBIDOPA\LEVODOPA
     Dosage: UNK
     Dates: start: 201804

REACTIONS (7)
  - Cataract [Unknown]
  - Feeling abnormal [Recovering/Resolving]
  - Pneumonia [Unknown]
  - Dyspnoea [Unknown]
  - Red blood cell sedimentation rate increased [Unknown]
  - Asthenia [Unknown]
  - Gait disturbance [Not Recovered/Not Resolved]
